FAERS Safety Report 22066687 (Version 1)
Quarter: 2023Q1

REPORT INFORMATION
  Report Type: Spontaneous
  Country: NL (occurrence: NL)
  Receive Date: 20230306
  Receipt Date: 20230306
  Transmission Date: 20230418
  Serious: Yes (Other)
  Sender: FDA-Public Use
  Company Number: None

PATIENT
  Sex: Female
  Weight: 66 kg

DRUGS (2)
  1. DEXAMETHASONE [Suspect]
     Active Substance: DEXAMETHASONE
     Indication: Pain
     Dosage: 1MALIG
     Route: 065
     Dates: start: 20230104
  2. LIDOCAINE [Suspect]
     Active Substance: LIDOCAINE
     Indication: Pain
     Dosage: 1ML INJVL 20MG/ML (HCL) / BRAND NAME NOT SPECIFIED
     Route: 065
     Dates: start: 20230104, end: 20230104

REACTIONS (5)
  - Depressed level of consciousness [Recovered/Resolved]
  - Paralysis [Recovered/Resolved]
  - Influenza like illness [Recovered/Resolved]
  - Headache [Recovered/Resolved]
  - Nausea [Recovered/Resolved]
